FAERS Safety Report 5932553-6 (Version None)
Quarter: 2008Q4

REPORT INFORMATION
  Report Type: 
  Country: None (occurrence: None)
  Receive Date: 20081023
  Receipt Date: 20081007
  Transmission Date: 20090506
  Serious: Yes (Other)
  Sender: FDA-Public Use
  Company Number: 2008-01119FE

PATIENT
  Age: 11 Year
  Sex: Male

DRUGS (3)
  1. DESMOPRESSIN ACETATE [Suspect]
     Indication: ENURESIS
     Dosage: SL/PO
     Route: 060
     Dates: start: 20080601, end: 20080601
  2. DESMOPRESSIN ACETATE [Suspect]
     Indication: ENURESIS
     Dosage: SL/PO
     Route: 060
     Dates: start: 20080723, end: 20080729
  3. METHYLPHENIDATE HCL [Concomitant]

REACTIONS (2)
  - DRUG INTERACTION [None]
  - HALLUCINATION, AUDITORY [None]
